FAERS Safety Report 9157188 (Version 1)
Quarter: 2013Q1

REPORT INFORMATION
  Report Type: Spontaneous
  Country: DK (occurrence: None)
  Receive Date: 20130212
  Receipt Date: 20130212
  Transmission Date: 20140127
  Serious: Yes (Other)
  Sender: FDA-Public Use
  Company Number: 2013MA001043

PATIENT
  Sex: Male

DRUGS (1)
  1. FINASTERIDE TABLETS, USP 5 MG (ATLLC) (FINASTERIDE) [Suspect]
     Indication: ALOPECIA
     Route: 048
     Dates: start: 200709, end: 201209

REACTIONS (6)
  - Depression [None]
  - Libido decreased [None]
  - Apathy [None]
  - Sleep disorder [None]
  - Pelvic floor muscle weakness [None]
  - Pollakiuria [None]
